FAERS Safety Report 10869617 (Version 1)
Quarter: 2015Q1

REPORT INFORMATION
  Report Type: Spontaneous
  Country: US (occurrence: US)
  Receive Date: 20150226
  Receipt Date: 20150226
  Transmission Date: 20150721
  Serious: No
  Sender: FDA-Public Use
  Company Number: US-GLAXOSMITHKLINE-US2015012606

PATIENT
  Age: 60 Year
  Sex: Female

DRUGS (3)
  1. FLOVENT DISKUS [Suspect]
     Active Substance: FLUTICASONE PROPIONATE
     Indication: GASTROOESOPHAGEAL REFLUX DISEASE
     Dosage: 2 PUFF(S), BID
     Route: 048
     Dates: start: 201501
  2. BLACK COHOSH [Concomitant]
     Active Substance: BLACK COHOSH
  3. NEXIUM [Concomitant]
     Active Substance: ESOMEPRAZOLE MAGNESIUM

REACTIONS (3)
  - Eye pain [Not Recovered/Not Resolved]
  - Off label use [Unknown]
  - Device use error [Unknown]

NARRATIVE: CASE EVENT DATE: 20150125
